FAERS Safety Report 6902585-X (Version None)
Quarter: 2010Q3

REPORT INFORMATION
  Report Type: 
  Country: None (occurrence: None)
  Receive Date: 20100803
  Receipt Date: 20080530
  Transmission Date: 20110219
  Serious: No
  Sender: FDA-Public Use
  Company Number: US-PFIZER INC-2008047201

PATIENT
  Sex: Female
  Weight: 75 kg

DRUGS (4)
  1. LYRICA [Suspect]
     Indication: PAIN IN EXTREMITY
     Dates: start: 20070101, end: 20080501
  2. LYRICA [Suspect]
     Indication: BACK PAIN
  3. LEVOTHYROXINE [Concomitant]
     Indication: THYROID DISORDER
  4. MULTI-VITAMINS [Concomitant]

REACTIONS (5)
  - DEPRESSED MOOD [None]
  - DIZZINESS [None]
  - FATIGUE [None]
  - LISTLESS [None]
  - WEIGHT INCREASED [None]
